FAERS Safety Report 5723715-1 (Version None)
Quarter: 2008Q2

REPORT INFORMATION
  Report Type: 
  Country: None (occurrence: None)
  Receive Date: 20080429
  Receipt Date: 20080429
  Transmission Date: 20081010
  Serious: No
  Sender: FDA-Public Use
  Company Number: None

PATIENT
  Sex: Male
  Weight: 68.9467 kg

DRUGS (2)
  1. FLUOXETINE [Suspect]
     Indication: ANXIETY
     Dosage: 20 MG THREE TIMES A DAY P.O.
     Route: 048
     Dates: start: 20040803, end: 20060125
  2. FLUOXETINE [Suspect]
     Indication: DEPRESSION
     Dosage: 20 MG THREE TIMES A DAY P.O.
     Route: 048
     Dates: start: 20040803, end: 20060125

REACTIONS (3)
  - DRUG INEFFECTIVE [None]
  - FATIGUE [None]
  - THERAPEUTIC RESPONSE UNEXPECTED WITH DRUG SUBSTITUTION [None]
